FAERS Safety Report 12745450 (Version 5)
Quarter: 2017Q2

REPORT INFORMATION
  Report Type: Spontaneous
  Country: US (occurrence: US)
  Receive Date: 20160915
  Receipt Date: 20170419
  Transmission Date: 20170830
  Serious: Yes (Other)
  Sender: FDA-Public Use
  Company Number: US-PFIZER INC-2016422924

PATIENT
  Age: 42 Year
  Sex: Female
  Weight: 92.4 kg

DRUGS (1)
  1. EPIPEN [Suspect]
     Active Substance: EPINEPHRINE
     Indication: HYPERSENSITIVITY
     Dosage: UNK
     Dates: start: 20160827, end: 20160827

REACTIONS (2)
  - Hyperventilation [Unknown]
  - Anxiety [Unknown]

NARRATIVE: CASE EVENT DATE: 20160827
